FAERS Safety Report 4862083-4 (Version None)
Quarter: 2005Q4

REPORT INFORMATION
  Report Type: 
  Country: None (occurrence: None)
  Receive Date: 20051130
  Receipt Date: 20041118
  Transmission Date: 20060501
  Serious: Yes (Other)
  Sender: FDA-Public Use
  Company Number: PHEH2004US12542

PATIENT
  Sex: Female

DRUGS (1)
  1. LAMISIL [Suspect]
     Dosage: ORAL
     Route: 048

REACTIONS (1)
  - RASH [None]
